FAERS Safety Report 6429270-5 (Version None)
Quarter: 2009Q4

REPORT INFORMATION
  Report Type: 
  Country: None (occurrence: None)
  Receive Date: 20091105
  Receipt Date: 20091102
  Transmission Date: 20100525
  Serious: Yes (Death, Other)
  Sender: FDA-Public Use
  Company Number: PHHY2009JP42467

PATIENT
  Age: 30 Year
  Sex: Male

DRUGS (2)
  1. RITALIN [Suspect]
     Dosage: 05 MG, TID
     Route: 048
     Dates: start: 20060601
  2. RITALIN [Suspect]
     Dosage: 15 MG DAILY

REACTIONS (4)
  - ABNORMAL BEHAVIOUR [None]
  - COMPLETED SUICIDE [None]
  - DRUG TOXICITY [None]
  - INTENTIONAL OVERDOSE [None]
